FAERS Safety Report 8387253-2 (Version None)
Quarter: 2012Q2

REPORT INFORMATION
  Report Type: 
  Country: None (occurrence: None)
  Receive Date: 20120525
  Receipt Date: 20120510
  Transmission Date: 20120825
  Serious: Yes (Hospitalization, Other)
  Sender: FDA-Public Use
  Company Number: AU-ROCHE-1068050

PATIENT
  Age: 73 Year
  Sex: Male
  Weight: 86.7 kg

DRUGS (15)
  1. PRESSIN [Concomitant]
     Dates: start: 19710101, end: 20120430
  2. METOCLOPRAMIDE [Concomitant]
     Dates: start: 20111117
  3. VEMURAFENIB [Suspect]
     Route: 048
     Dates: start: 20120105
  4. MICARDIS [Concomitant]
     Dates: start: 19710101, end: 20120430
  5. OMEPRAZOLE [Concomitant]
     Dates: start: 20111123
  6. VEMURAFENIB [Suspect]
     Dates: end: 20120508
  7. ISOPTIN SR [Concomitant]
     Dates: start: 19710101, end: 20120430
  8. PROCHLORPERAZINE [Concomitant]
     Dates: start: 20111208
  9. NYSTATIN LOZENGE [Concomitant]
     Dates: start: 20111208
  10. OXYCONTIN [Concomitant]
     Dates: start: 20111204
  11. LACTULOSE [Concomitant]
     Dates: start: 20111110
  12. COLOXYL + SENNA [Concomitant]
     Dates: start: 20111110
  13. FLUCONAZOLE [Concomitant]
     Dates: start: 20120207
  14. VEMURAFENIB [Suspect]
     Indication: MALIGNANT MELANOMA
     Route: 048
     Dates: start: 20111110
  15. VEMURAFENIB [Suspect]
     Route: 048
     Dates: start: 20120312

REACTIONS (2)
  - HYPOTENSION [None]
  - BLOOD CREATININE INCREASED [None]
